FAERS Safety Report 19605151 (Version 1)
Quarter: 2021Q3

REPORT INFORMATION
  Report Type: Spontaneous
  Country: DE (occurrence: DE)
  Receive Date: 20210724
  Receipt Date: 20210724
  Transmission Date: 20211014
  Serious: Yes (Congenital Anomaly)
  Sender: FDA-Public Use
  Company Number: DE-UCBSA-2021034446

PATIENT

DRUGS (4)
  1. FERRO SANOL [Concomitant]
     Active Substance: FERROUS GLYCINE SULFATE
     Indication: IRON DEFICIENCY
     Dosage: UNK, ONCE DAILY (QD)
     Route: 064
     Dates: start: 202105
  2. CERTOLIZUMAB PEGOL [Suspect]
     Active Substance: CERTOLIZUMAB PEGOL
     Indication: AXIAL SPONDYLOARTHRITIS
     Dosage: 200 MILLIGRAM, EV 2 WEEKS(QOW)
     Route: 064
     Dates: start: 2021
  3. MAGNESIUM [Concomitant]
     Active Substance: MAGNESIUM
     Indication: PREGNANCY
     Dosage: 200 MILLIGRAM, ONCE DAILY (QD)
     Route: 064
  4. FOLIC ACID. [Concomitant]
     Active Substance: FOLIC ACID
     Indication: PREGNANCY
     Route: 064

REACTIONS (4)
  - Congenital choroid plexus cyst [Recovered/Resolved]
  - Drug exposure before pregnancy [Unknown]
  - Maternal exposure during pregnancy [Unknown]
  - Trisomy 21 [Unknown]

NARRATIVE: CASE EVENT DATE: 202103
